FAERS Safety Report 5287523-0 (Version None)
Quarter: 2007Q1

REPORT INFORMATION
  Report Type: 
  Country: None (occurrence: None)
  Receive Date: 20070116
  Receipt Date: 20061002
  Transmission Date: 20070707
  Serious: No
  Sender: FDA-Public Use
  Company Number: 2006SP003487

PATIENT
  Age: 52 Year
  Sex: Female
  Weight: 56.6996 kg

DRUGS (3)
  1. LUNESTA [Suspect]
     Indication: INSOMNIA
     Dosage: 2 MG; HS; ORAL; 2 MG; HS; ORAL
     Route: 048
     Dates: start: 20060915, end: 20060928
  2. LUNESTA [Suspect]
     Indication: INSOMNIA
     Dosage: 2 MG; HS; ORAL; 2 MG; HS; ORAL
     Route: 048
     Dates: start: 20060930
  3. VITAMIN CAP [Concomitant]

REACTIONS (2)
  - HEADACHE [None]
  - INSOMNIA [None]
